FAERS Safety Report 11892451 (Version 1)
Quarter: 2016Q1

REPORT INFORMATION
  Report Type: Spontaneous
  Country: JP (occurrence: JP)
  Receive Date: 20160106
  Receipt Date: 20160106
  Transmission Date: 20160526
  Serious: Yes (Death, Other)
  Sender: FDA-Public Use
  Company Number: PHJP2015JP023683

PATIENT
  Age: 63 Year
  Sex: Female
  Weight: 67 kg

DRUGS (13)
  1. FEMARA [Suspect]
     Active Substance: LETROZOLE
     Indication: BREAST CANCER STAGE IV
     Dosage: 2.5 MG, QD
     Route: 048
     Dates: start: 20121226
  2. XELODA [Concomitant]
     Active Substance: CAPECITABINE
     Dosage: 2400 MG, UNK
     Route: 065
     Dates: start: 20121102, end: 20121201
  3. TYKERB [Suspect]
     Active Substance: LAPATINIB DITOSYLATE
     Indication: BREAST CANCER STAGE IV
     Dosage: 1250 MG, UNK
     Route: 048
     Dates: start: 20121102
  4. DOCETAXEL. [Concomitant]
     Active Substance: DOCETAXEL
     Indication: BREAST CANCER STAGE IV
     Dosage: 96 MG, UNK
     Route: 065
     Dates: start: 20050404, end: 20050405
  5. XELODA [Concomitant]
     Active Substance: CAPECITABINE
     Indication: BREAST CANCER
     Dosage: 4200 MG, UNK
     Route: 065
     Dates: start: 20110804
  6. TYKERB [Suspect]
     Active Substance: LAPATINIB DITOSYLATE
     Dosage: 1250 MG, UNK
     Route: 048
     Dates: start: 20121213
  7. XELODA [Concomitant]
     Active Substance: CAPECITABINE
     Dosage: 2400 MG, UNK
     Route: 065
     Dates: start: 20121213
  8. PITRESSIN [Concomitant]
     Active Substance: VASOPRESSIN
     Indication: BLOOD PRESSURE MEASUREMENT
     Dosage: 2 U, QH
  9. PERTUZUMAB [Concomitant]
     Active Substance: PERTUZUMAB
     Indication: BREAST CANCER STAGE IV
     Dosage: UNK
     Route: 065
  10. DOCETAXEL. [Concomitant]
     Active Substance: DOCETAXEL
     Dosage: 76 MG, UNK
     Route: 065
  11. HYDROCORTISONE SODIUM PHOSPHATE [Concomitant]
     Active Substance: HYDROCORTISONE SODIUM PHOSPHATE
     Indication: BLOOD PRESSURE MEASUREMENT
     Dosage: 300 MG, UNK
     Route: 065
  12. DOCETAXEL. [Concomitant]
     Active Substance: DOCETAXEL
     Dosage: 120 MG, UNK
     Route: 065
     Dates: start: 20051028
  13. DOCETAXEL. [Concomitant]
     Active Substance: DOCETAXEL
     Dosage: 80 MG, QD
     Route: 041
     Dates: start: 20150828, end: 20150828

REACTIONS (40)
  - Osteonecrosis of jaw [Not Recovered/Not Resolved]
  - Thrombocytopenia [Unknown]
  - C-reactive protein increased [Unknown]
  - Hypokalaemia [Unknown]
  - Blood creatinine increased [Unknown]
  - Disuse syndrome [Unknown]
  - Hypoxia [Unknown]
  - Vomiting [Unknown]
  - Diarrhoea [Unknown]
  - Intestinal ischaemia [Unknown]
  - Pseudomonas infection [Unknown]
  - Cholelithiasis [Unknown]
  - Depressed level of consciousness [Fatal]
  - Systemic candida [Unknown]
  - Bacterial infection [Unknown]
  - Bacillus infection [Unknown]
  - Hepatic cyst [Unknown]
  - Respiratory distress [Fatal]
  - Blood disorder [Unknown]
  - Pleural fibrosis [Unknown]
  - Ascites [Unknown]
  - Atelectasis [Unknown]
  - Septic shock [Fatal]
  - Foaming at mouth [Fatal]
  - Blood lactic acid increased [Fatal]
  - Gastrointestinal haemorrhage [Unknown]
  - Pleural effusion [Unknown]
  - Hypoventilation [Unknown]
  - Urinary tract infection [Unknown]
  - Coagulation factor deficiency [Unknown]
  - Abdominal compartment syndrome [Unknown]
  - Febrile neutropenia [Unknown]
  - White blood cell count decreased [Unknown]
  - Acute kidney injury [Recovered/Resolved]
  - Large intestine perforation [Unknown]
  - Haematochezia [Unknown]
  - Staphylococcal infection [Unknown]
  - Blood urea increased [Unknown]
  - Malaise [Unknown]
  - Fluid retention [Unknown]

NARRATIVE: CASE EVENT DATE: 201310
